FAERS Safety Report 26012609 (Version 1)
Quarter: 2025Q4

REPORT INFORMATION
  Report Type: Spontaneous
  Country: EU (occurrence: EU)
  Receive Date: 20251107
  Receipt Date: 20251107
  Transmission Date: 20260117
  Serious: Yes (Other)
  Sender: BIOGEN
  Company Number: EU-BIOGEN-2089489

PATIENT
  Age: 52 Year
  Sex: Female

DRUGS (1)
  1. TYSABRI [Suspect]
     Active Substance: NATALIZUMAB
     Indication: Multiple sclerosis
     Dates: start: 20170202, end: 2022

REACTIONS (11)
  - Pulmonary congestion [Unknown]
  - Pruritus [Unknown]
  - Dysphonia [Unknown]
  - Paraesthesia oral [Unknown]
  - Pollakiuria [Unknown]
  - Pseudomonas infection [Not Recovered/Not Resolved]
  - Hypersensitivity [Recovered/Resolved]
  - Oedema peripheral [Unknown]
  - Dry skin [Unknown]
  - Cough [Unknown]
  - Sinonasal obstruction [Unknown]

NARRATIVE: CASE EVENT DATE: 20170101
